FAERS Safety Report 4957837-X (Version None)
Quarter: 2006Q1

REPORT INFORMATION
  Report Type: 
  Country: None (occurrence: None)
  Receive Date: 20060324
  Receipt Date: 20060313
  Transmission Date: 20060701
  Serious: Yes (Death)
  Sender: FDA-Public Use
  Company Number: 13650

PATIENT
  Age: 36 Year
  Sex: Female

DRUGS (6)
  1. ETOPOSIDE [Suspect]
     Indication: T-CELL LYMPHOMA REFRACTORY
     Dosage: 150 MG/M2 DAILY IV
     Route: 042
  2. METHOTREXATE [Suspect]
     Indication: T-CELL LYMPHOMA REFRACTORY
  3. IDARUBICIN HCL [Suspect]
     Indication: T-CELL LYMPHOMA REFRACTORY
     Dosage: 10 MG/M2 DAILY IV
     Route: 042
  4. IFOSFAMIDE [Suspect]
     Indication: T-CELL LYMPHOMA REFRACTORY
     Dosage: 1000 MG/M2 DAILY IV
     Route: 042
  5. MESNA [Concomitant]
  6. PRIMIDONE [Concomitant]

REACTIONS (21)
  - AREFLEXIA [None]
  - BLINDNESS CORTICAL [None]
  - BLOOD CREATININE INCREASED [None]
  - BLOOD PRESSURE INCREASED [None]
  - BLOOD SODIUM DECREASED [None]
  - BLOOD URIC ACID INCREASED [None]
  - CONVULSION [None]
  - DISORIENTATION [None]
  - DRUG TOXICITY [None]
  - HAEMODIALYSIS [None]
  - HALLUCINATION [None]
  - LEUKOENCEPHALOPATHY [None]
  - LIVER DISORDER [None]
  - LIVER FUNCTION TEST ABNORMAL [None]
  - LOSS OF CONSCIOUSNESS [None]
  - MALIGNANT NEOPLASM PROGRESSION [None]
  - MENTAL STATUS CHANGES [None]
  - PAPILLOEDEMA [None]
  - PLATELET COUNT DECREASED [None]
  - RENAL DISORDER [None]
  - STUPOR [None]
